FAERS Safety Report 6857421-7 (Version None)
Quarter: 2010Q3

REPORT INFORMATION
  Report Type: 
  Country: None (occurrence: None)
  Receive Date: 20100719
  Receipt Date: 20080122
  Transmission Date: 20110219
  Serious: No
  Sender: FDA-Public Use
  Company Number: US-PFIZER INC-2008008380

PATIENT
  Sex: Female
  Weight: 73.636 kg

DRUGS (4)
  1. CHANTIX [Suspect]
     Indication: SMOKING CESSATION THERAPY
     Dates: start: 20080120
  2. SPIRIVA [Concomitant]
     Route: 055
  3. SEREVENT [Concomitant]
     Route: 055
  4. ANTIHYPERTENSIVES [Concomitant]

REACTIONS (2)
  - AGEUSIA [None]
  - ANOSMIA [None]
